FAERS Safety Report 9132985 (Version 2)
Quarter: 2016Q4

REPORT INFORMATION
  Report Type: Spontaneous
  Country: GB (occurrence: GB)
  Receive Date: 20130107
  Receipt Date: 20161206
  Transmission Date: 20170207
  Serious: Yes (Hospitalization, Other)
  Sender: FDA-Public Use
  Company Number: GB-TEVA-378719ISR

PATIENT
  Age: 16 Year
  Sex: Female
  Weight: 52.6 kg

DRUGS (4)
  1. COTRIMOXAZOLE [Concomitant]
     Active Substance: SULFAMETHOXAZOLE\TRIMETHOPRIM
     Indication: ANTIBIOTIC THERAPY
     Dosage: 960 MILLIGRAM DAILY; 480 MG, 2X/DAY (480 MG, EVERY 2 WEEKENDS, FREQ: 2 DAY; INTERVAL: 1)?
     Route: 048
  2. ONDANSETRON [Concomitant]
     Active Substance: ONDANSETRON
     Indication: ANTIEMETIC SUPPORTIVE CARE
     Dosage: 24 MILLIGRAM DAILY; 8 MG, AS NEEDED (8 MG, AS NEEDED, FREQ: 3 DAY; INTERVAL: 1.)?
     Route: 048
  3. METHOTREXATE. [Suspect]
     Active Substance: METHOTREXATE
     Indication: ACUTE LYMPHOCYTIC LEUKAEMIA
     Dosage: 100 MG/M2, UNK?
     Route: 042
  4. VINCRISTINE [Concomitant]
     Active Substance: VINCRISTINE
     Indication: ACUTE LYMPHOCYTIC LEUKAEMIA
     Dosage: 1.5 MG/M2, UNK?
     Route: 042

REACTIONS (1)
  - Mucosal inflammation [Unknown]
